FAERS Safety Report 7964511-4 (Version None)
Quarter: 2011Q4

REPORT INFORMATION
  Report Type: 
  Country: None (occurrence: None)
  Receive Date: 20111206
  Receipt Date: 20111124
  Transmission Date: 20120403
  Serious: Yes (Life-Threatening, Other)
  Sender: FDA-Public Use
  Company Number: EU-2011-10151

PATIENT
  Age: 71 Year
  Sex: Female

DRUGS (7)
  1. KEPPRA [Concomitant]
  2. ACETAMINOPHEN [Concomitant]
  3. ENOXAPARIN SODIUM [Concomitant]
  4. ANDROCUR (CYPROTERONE ACETATE) [Concomitant]
  5. NEXIUM IV [Concomitant]
  6. SAMSCA [Suspect]
     Indication: HYPONATRAEMIA
     Dosage: 15 MG MILLIGRAM(S), SINGLE
     Dates: start: 20110506, end: 20110506
  7. DEXAMETHASONE SODIUM POSPHATE [Concomitant]

REACTIONS (2)
  - POLYURIA [None]
  - RAPID CORRECTION OF HYPONATRAEMIA [None]
